FAERS Safety Report 4864566-X (Version None)
Quarter: 2005Q4

REPORT INFORMATION
  Report Type: 
  Country: None (occurrence: None)
  Receive Date: 20051222
  Receipt Date: 20051214
  Transmission Date: 20060501
  Serious: Yes (Other)
  Sender: FDA-Public Use
  Company Number: PHBS2005JP18648

PATIENT
  Sex: Male

DRUGS (3)
  1. GLEEVEC [Suspect]
     Indication: CHRONIC MYELOID LEUKAEMIA
     Dosage: 400 MG/DAY
     Route: 048
     Dates: start: 20050801, end: 20051201
  2. GLEEVEC [Suspect]
     Dosage: 300 MG/DAY
     Route: 048
     Dates: start: 20051207
  3. NAUZELIN [Concomitant]
     Indication: NAUSEA

REACTIONS (4)
  - ANGIOKERATOMA [None]
  - BLADDER TELANGIECTASIA [None]
  - NAUSEA [None]
  - PLEURAL EFFUSION [None]
